FAERS Safety Report 9999202 (Version 1)
Quarter: 2014Q1

REPORT INFORMATION
  Report Type: Spontaneous
  Country: US (occurrence: None)
  Receive Date: 20140311
  Receipt Date: 20140311
  Transmission Date: 20141002
  Serious: Yes (Other)
  Sender: FDA-Public Use
  Company Number: None

PATIENT
  Age: 53 Year
  Sex: Female
  Weight: 74.84 kg

DRUGS (1)
  1. VENLAFAXINE [Suspect]
     Indication: ANXIETY
     Dosage: 1 DOSE ONCE DAILY TAKEN BY MOUTH
     Route: 048
     Dates: start: 20140220, end: 20140222

REACTIONS (10)
  - Hypersomnia [None]
  - Panic attack [None]
  - Somnolence [None]
  - Confusional state [None]
  - Arrhythmia [None]
  - Tremor [None]
  - Asthenia [None]
  - Speech disorder [None]
  - Constipation [None]
  - Diarrhoea [None]
